FAERS Safety Report 6617872-2 (Version None)
Quarter: 2010Q1

REPORT INFORMATION
  Report Type: 
  Country: None (occurrence: None)
  Receive Date: 20100308
  Receipt Date: 20100224
  Transmission Date: 20100710
  Serious: Yes (Other)
  Sender: FDA-Public Use
  Company Number: JP-ELI_LILLY_AND_COMPANY-JP201002006793

PATIENT
  Age: 76 Year
  Sex: Male

DRUGS (6)
  1. ZYPREXA [Suspect]
     Indication: DEMENTIA WITH LEWY BODIES
     Dosage: 5 MG, DAILY (1/D)
     Route: 065
  2. ZYPREXA [Suspect]
     Dosage: 7 MG, DAILY (1/D)
     Route: 065
  3. ZYPREXA [Suspect]
     Dosage: 1 MG, DAILY (1/D)
     Route: 065
  4. ZYPREXA [Suspect]
     Dosage: 10 MG, DAILY (1/D)
     Route: 065
  5. DONEPEZIL HYDROCHLORIDE [Concomitant]
     Indication: DEMENTIA WITH LEWY BODIES
     Dosage: 5 MG, DAILY (1/D)
     Route: 065
  6. VALPROATE SODIUM [Concomitant]
     Indication: DEMENTIA WITH LEWY BODIES
     Dosage: 500 MG, DAILY (1/D)
     Route: 065

REACTIONS (10)
  - AGGRESSION [None]
  - ANXIETY [None]
  - HYPOPHAGIA [None]
  - IRRITABILITY [None]
  - MOOD ALTERED [None]
  - MUSCULAR WEAKNESS [None]
  - OFF LABEL USE [None]
  - PNEUMONIA [None]
  - PORIOMANIA [None]
  - SOMNOLENCE [None]
